FAERS Safety Report 5803091-6 (Version None)
Quarter: 2008Q2

REPORT INFORMATION
  Report Type: 
  Country: None (occurrence: None)
  Receive Date: 20080626
  Receipt Date: 20070612
  Transmission Date: 20081010
  Serious: Yes (Hospitalization)
  Sender: FDA-Public Use
  Company Number: VISP-PR-0706S-0252

PATIENT
  Sex: Female

DRUGS (2)
  1. VISIPAQUE [Suspect]
     Indication: CORONARY ARTERY DISEASE
     Dosage: 120 ML, SINGLE DOSE, I.A.
     Route: 013
     Dates: start: 20070611, end: 20070611
  2. PREDNISONE [Concomitant]

REACTIONS (1)
  - GRAND MAL CONVULSION [None]
